FAERS Safety Report 9978575 (Version 1)
Quarter: 2014Q1

REPORT INFORMATION
  Report Type: Spontaneous
  Country: US (occurrence: US)
  Receive Date: 20140306
  Receipt Date: 20140306
  Transmission Date: 20141002
  Serious: No
  Sender: FDA-Public Use
  Company Number: US-ABBVIE-13P-163-1171643-00

PATIENT
  Sex: 0

DRUGS (5)
  1. HUMIRA [Suspect]
     Indication: CROHN^S DISEASE
  2. REMICADE [Suspect]
     Indication: PRODUCT USED FOR UNKNOWN INDICATION
  3. CIMZIA [Suspect]
     Indication: PRODUCT USED FOR UNKNOWN INDICATION
  4. 6-MP [Suspect]
     Indication: PRODUCT USED FOR UNKNOWN INDICATION
  5. TYSABRI [Concomitant]
     Indication: CROHN^S DISEASE

REACTIONS (7)
  - Mouth ulceration [Not Recovered/Not Resolved]
  - Drug hypersensitivity [Unknown]
  - Pain [Unknown]
  - Aphasia [Unknown]
  - Nightmare [Not Recovered/Not Resolved]
  - Aphagia [Unknown]
  - Insomnia [Unknown]
